FAERS Safety Report 8775429 (Version 1)
Quarter: 2012Q4

REPORT INFORMATION
  Report Type: 
  Country: DE (occurrence: DE)
  Receive Date: 20120910
  Receipt Date: 20120910
  Transmission Date: 20130627
  Serious: Yes (Other)
  Sender: FDA-Public Use
  Company Number: DE-RANBAXY-2012R1-59769

PATIENT
  Age: 58 Year
  Sex: Male
  Weight: 85 kg

DRUGS (3)
  1. AMPICILLIN [Suspect]
     Indication: APPENDICITIS PERFORATED
     Dosage: 3 g, tid
     Route: 042
     Dates: start: 20120215, end: 20120219
  2. CLINDAMYCIN [Suspect]
     Indication: DENTAL EXAMINATION
     Dosage: UNK
     Route: 048
     Dates: start: 20120110
  3. METRONIDAZOLE [Suspect]
     Indication: APPENDICITIS PERFORATED
     Dosage: 500 mg, tid
     Route: 042
     Dates: start: 20120215, end: 20120219

REACTIONS (5)
  - Renal failure [Recovered/Resolved]
  - Pseudomembranous colitis [Recovered/Resolved]
  - Respiratory failure [Recovered/Resolved]
  - Soft tissue necrosis [Recovered/Resolved]
  - Soft tissue necrosis [Recovered/Resolved]
